FAERS Safety Report 20584724 (Version 3)
Quarter: 2022Q2

REPORT INFORMATION
  Report Type: Spontaneous
  Country: US (occurrence: US)
  Receive Date: 20220311
  Receipt Date: 20220513
  Transmission Date: 20220721
  Serious: Yes (Other)
  Sender: FDA-Public Use
  Company Number: US-PFIZER INC-202200247672

PATIENT
  Age: 63 Year
  Sex: Female

DRUGS (3)
  1. XELJANZ [Suspect]
     Active Substance: TOFACITINIB CITRATE
     Dosage: 5 MG
     Dates: start: 20210831
  2. XELJANZ [Suspect]
     Active Substance: TOFACITINIB CITRATE
     Dosage: 5 MG, DAILY (TAKING 1 TABLET 3 DAYS IN A WEEK)
     Dates: start: 20220208, end: 20220420
  3. XELJANZ [Suspect]
     Active Substance: TOFACITINIB CITRATE
     Dosage: 10 MG, DAILY (TAKING 2 TABLETS THE OTHER 4 DAYS IN A WEEK)
     Dates: start: 20220208, end: 20220423

REACTIONS (10)
  - Pneumonia [Unknown]
  - Arthralgia [Unknown]
  - Hypoaesthesia [Unknown]
  - Cough [Unknown]
  - Pollakiuria [Unknown]
  - Toothache [Unknown]
  - Lung disorder [Unknown]
  - Influenza [Unknown]
  - Micturition disorder [Unknown]
  - Intentional product use issue [Unknown]

NARRATIVE: CASE EVENT DATE: 20220201
